FAERS Safety Report 6082628-9 (Version None)
Quarter: 2009Q1

REPORT INFORMATION
  Report Type: 
  Country: None (occurrence: None)
  Receive Date: 20090202
  Receipt Date: 20070607
  Transmission Date: 20090719
  Serious: Yes (Hospitalization)
  Sender: FDA-Public Use
  Company Number: 263564

PATIENT
  Age: 32 Year
  Sex: Male
  Weight: 90.7 kg

DRUGS (3)
  1. NOVOLOG [Suspect]
     Indication: TYPE 1 DIABETES MELLITUS
     Dosage: 80 TO 100 IU, QD, SUBCUTAN.-PUMP
     Route: 058
     Dates: start: 20030101
  2. VYTORIN [Concomitant]
  3. ZESTRIL [Concomitant]

REACTIONS (1)
  - BLOOD GLUCOSE INCREASED [None]
